FAERS Safety Report 17823325 (Version 1)
Quarter: 2020Q2

REPORT INFORMATION
  Report Type: Spontaneous
  Country: JP (occurrence: JP)
  Receive Date: 20200526
  Receipt Date: 20200526
  Transmission Date: 20200714
  Serious: Yes (Other)
  Sender: FDA-Public Use
  Company Number: NVSJ2020JP005234

PATIENT
  Age: 3 Year
  Sex: Male

DRUGS (1)
  1. SANDIMMUN INFUSION [Suspect]
     Active Substance: CYCLOSPORINE
     Indication: HAEMOPHAGOCYTIC LYMPHOHISTIOCYTOSIS
     Dosage: 3 MG/KG
     Route: 042

REACTIONS (2)
  - Epilepsy [Recovering/Resolving]
  - Cerebral haemorrhage [Unknown]
